FAERS Safety Report 7700235-6 (Version None)
Quarter: 2011Q3

REPORT INFORMATION
  Report Type: 
  Country: None (occurrence: None)
  Receive Date: 20110822
  Receipt Date: 20110812
  Transmission Date: 20111222
  Serious: Yes (Hospitalization, Other)
  Sender: FDA-Public Use
  Company Number: US-TYCO HEALTHCARE/MALLINCKRODT-T201001752

PATIENT
  Sex: Female
  Weight: 91 kg

DRUGS (22)
  1. CLIMARA [Concomitant]
     Dosage: 25 MG
     Route: 062
  2. PROAIR HFA [Concomitant]
     Dosage: UNK
  3. CLONIDINE [Concomitant]
     Dosage: UNK
  4. SODIUM CHLORIDE [Suspect]
     Dosage: 10 ML, SINGLE
     Route: 014
     Dates: start: 20080828, end: 20080828
  5. ATENOLOL [Concomitant]
     Dosage: UNK
  6. VITAMIN D [Concomitant]
     Dosage: UNK
  7. CELEBREX [Concomitant]
     Dosage: UNK
  8. NIFEDIPINE [Concomitant]
     Dosage: UNK
  9. OPTIRAY 300 [Suspect]
     Dosage: 5-10 ML
     Route: 014
     Dates: start: 20080828, end: 20080828
  10. AYGESTIN [Concomitant]
     Dosage: UNK
  11. SIMAVASTATIN [Concomitant]
     Dosage: UNK
  12. RELPAX [Concomitant]
     Dosage: UNK
  13. HYDROQUINONE [Concomitant]
     Dosage: UNK
  14. BONIVA [Concomitant]
     Dosage: UNK
  15. MAGNEVIST [Suspect]
     Indication: ARTHROGRAM
     Dosage: 1 ML, SINGLE
     Route: 014
     Dates: start: 20080828, end: 20080828
  16. VANCOMYCIN [Concomitant]
     Dosage: UNK
  17. CELEXA [Concomitant]
     Dosage: UNK
  18. LIDOCAINE [Suspect]
     Dosage: 5 ML, SINGLE
     Route: 014
     Dates: start: 20080828, end: 20080828
  19. FAMOTIDINE [Concomitant]
     Dosage: UNK
  20. HYDROCHLOROTHIAZIDE [Concomitant]
     Dosage: UNK
  21. ONDANSETRON [Concomitant]
     Dosage: UNK
  22. CEFTRIAXONE [Concomitant]

REACTIONS (12)
  - ABDOMINAL PAIN UPPER [None]
  - RENAL TUBULAR NECROSIS [None]
  - JOINT RANGE OF MOTION DECREASED [None]
  - INCORRECT ROUTE OF DRUG ADMINISTRATION [None]
  - MUSCULOSKELETAL PAIN [None]
  - MUSCULOSKELETAL STIFFNESS [None]
  - RENAL DISORDER [None]
  - RENAL FAILURE ACUTE [None]
  - OFF LABEL USE [None]
  - WRONG TECHNIQUE IN DRUG USAGE PROCESS [None]
  - SEPTIC ARTHRITIS STAPHYLOCOCCAL [None]
  - ASTHENIA [None]
